FAERS Safety Report 5780790-6 (Version None)
Quarter: 2008Q2

REPORT INFORMATION
  Report Type: 
  Country: None (occurrence: None)
  Receive Date: 20080620
  Receipt Date: 20080610
  Transmission Date: 20081010
  Serious: Yes (Other)
  Sender: FDA-Public Use
  Company Number: US-PFIZER INC-2007015120

PATIENT
  Sex: Male
  Weight: 72 kg

DRUGS (13)
  1. VIAGRA [Suspect]
  2. CORDARONE [Suspect]
  3. LOPRESSOR [Concomitant]
  4. ALTACE [Concomitant]
  5. BETAPACE [Concomitant]
  6. ALDACTONE [Concomitant]
  7. ZOCOR [Concomitant]
  8. LASIX [Concomitant]
  9. PEPCID [Concomitant]
  10. WARFARIN SODIUM [Concomitant]
  11. PERCOCET [Concomitant]
  12. DIGOXIN [Concomitant]
  13. FOLIC ACID [Concomitant]

REACTIONS (3)
  - BLINDNESS [None]
  - OPTIC ISCHAEMIC NEUROPATHY [None]
  - VISUAL FIELD DEFECT [None]
